FAERS Safety Report 11311497 (Version 2)
Quarter: 2015Q3

REPORT INFORMATION
  Report Type: Spontaneous
  Country: US (occurrence: US)
  Receive Date: 20150727
  Receipt Date: 20150819
  Transmission Date: 20151125
  Serious: Yes (Hospitalization, Other)
  Sender: FDA-Public Use
  Company Number: US-JNJFOC-20150715783

PATIENT
  Age: 50 Year
  Sex: Male
  Weight: 107.05 kg

DRUGS (3)
  1. VASCEPA [Concomitant]
     Active Substance: ETHYL ICOSAPENTATE
     Indication: HYPERTRIGLYCERIDAEMIA
     Route: 048
     Dates: start: 20140501
  2. INSULIN [Concomitant]
     Active Substance: INSULIN NOS
     Indication: DIABETES MELLITUS
     Route: 058
  3. INVOKANA [Suspect]
     Active Substance: CANAGLIFLOZIN
     Indication: TYPE 2 DIABETES MELLITUS
     Route: 048
     Dates: start: 20140501, end: 20150623

REACTIONS (2)
  - Diabetic ketoacidosis [Recovered/Resolved]
  - Cardiovascular disorder [Recovered/Resolved]

NARRATIVE: CASE EVENT DATE: 20150623
